FAERS Safety Report 6054079-4 (Version None)
Quarter: 2009Q1

REPORT INFORMATION
  Report Type: 
  Country: None (occurrence: None)
  Receive Date: 20090127
  Receipt Date: 20090123
  Transmission Date: 20090719
  Serious: Yes (Hospitalization)
  Sender: FDA-Public Use
  Company Number: GB-ROCHE-608420

PATIENT
  Sex: Female

DRUGS (3)
  1. ORLISTAT [Suspect]
     Indication: OBESITY
     Route: 048
     Dates: start: 20080822, end: 20081215
  2. CITALOPRAM HYDROBROMIDE [Concomitant]
     Route: 048
  3. NORDETTE-28 [Concomitant]
     Indication: CONTRACEPTION
     Route: 048

REACTIONS (1)
  - CELLULITIS [None]
